FAERS Safety Report 12378430 (Version 2)
Quarter: 2016Q2

REPORT INFORMATION
  Report Type: Spontaneous
  Country: DK (occurrence: FR)
  Receive Date: 20160517
  Receipt Date: 20160627
  Transmission Date: 20160815
  Serious: Yes (Hospitalization)
  Sender: FDA-Public Use
  Company Number: FR-FRI-1000084609

PATIENT
  Age: 64 Year
  Sex: Male

DRUGS (6)
  1. ATIVAN [Suspect]
     Active Substance: LORAZEPAM
     Indication: DEPRESSION
     Route: 065
     Dates: start: 2000, end: 2003
  2. EQUANIL [Suspect]
     Active Substance: MEPROBAMATE
     Indication: ANXIETY
     Route: 065
     Dates: start: 2000, end: 2003
  3. LAROXYL [Suspect]
     Active Substance: AMITRIPTYLINE
     Indication: DEPRESSION
     Route: 065
     Dates: start: 2000, end: 2003
  4. CITALOPRAM [Suspect]
     Active Substance: CITALOPRAM HYDROBROMIDE
     Indication: DEPRESSION
     Route: 048
     Dates: start: 2000, end: 2003
  5. URBANYL [Suspect]
     Active Substance: CLOBAZAM
     Indication: DEPRESSION
     Route: 048
     Dates: start: 2000, end: 2003
  6. SURMONTIL [Suspect]
     Active Substance: TRIMIPRAMINE MALEATE
     Indication: DEPRESSION
     Route: 065
     Dates: start: 2000, end: 2003

REACTIONS (3)
  - Hallucination [Not Recovered/Not Resolved]
  - Disorientation [Not Recovered/Not Resolved]
  - Memory impairment [Recovered/Resolved]

NARRATIVE: CASE EVENT DATE: 2003
